FAERS Safety Report 8643307 (Version 3)
Quarter: 2013Q4

REPORT INFORMATION
  Report Type: Report from Study
  Country: JP (occurrence: JP)
  Receive Date: 20120629
  Receipt Date: 20131111
  Transmission Date: 20140711
  Serious: Yes (Other)
  Sender: FDA-Public Use
  Company Number: PHHY2012JP054324

PATIENT
  Age: 48 Year
  Sex: Male

DRUGS (3)
  1. AMN107 [Suspect]
     Indication: CHRONIC MYELOID LEUKAEMIA
     Dosage: 400 MG, DAILY
     Route: 048
     Dates: start: 20100623
  2. LIPITOR [Concomitant]
     Dosage: 10 MG
     Dates: start: 20100623
  3. ALOSITOL [Concomitant]
     Dosage: 100 MG
     Route: 048
     Dates: start: 20100623

REACTIONS (1)
  - Liver disorder [Recovering/Resolving]
